FAERS Safety Report 6073511-3 (Version None)
Quarter: 2009Q1

REPORT INFORMATION
  Report Type: 
  Country: None (occurrence: None)
  Receive Date: 20090211
  Receipt Date: 20090203
  Transmission Date: 20090719
  Serious: Yes (Hospitalization)
  Sender: FDA-Public Use
  Company Number: GB-BAYER-200912705GPV

PATIENT
  Sex: Female

DRUGS (8)
  1. NIFEDIPINE [Suspect]
     Indication: BLOOD PRESSURE INCREASED
  2. HYDRALAZINE HCL [Suspect]
     Indication: BLOOD PRESSURE ABNORMAL
  3. LABETALOL HCL [Suspect]
     Indication: DRUG USE FOR UNKNOWN INDICATION
     Dosage: TOTAL DAILY DOSE: 200 MG
     Route: 065
  4. METHYLDOPA [Suspect]
     Indication: DRUG USE FOR UNKNOWN INDICATION
     Dosage: TOTAL DAILY DOSE: 2000 MG
     Route: 065
  5. METHYLDOPA [Suspect]
     Dosage: TOTAL DAILY DOSE: 750 MG
     Route: 065
  6. ACETYLSALICYLIC ACID SRT [Concomitant]
     Indication: PROPHYLAXIS
     Route: 065
  7. BETAMETHASONE [Concomitant]
     Indication: DRUG USE FOR UNKNOWN INDICATION
  8. DALTEPARIN SODIUM [Concomitant]
     Indication: DRUG USE FOR UNKNOWN INDICATION

REACTIONS (4)
  - BLOOD PRESSURE INCREASED [None]
  - CAESAREAN SECTION [None]
  - DRUG EXPOSURE DURING PREGNANCY [None]
  - DRUG INEFFECTIVE [None]
